FAERS Safety Report 7829243-1 (Version None)
Quarter: 2011Q4

REPORT INFORMATION
  Report Type: 
  Country: None (occurrence: None)
  Receive Date: 20111020
  Receipt Date: 20111019
  Transmission Date: 20120403
  Serious: Yes (Death, Hospitalization, Disabling)
  Sender: FDA-Public Use
  Company Number: RO-ABBOTT-11P-135-0866150-00

PATIENT
  Sex: Male
  Weight: 70 kg

DRUGS (1)
  1. HUMIRA [Suspect]
     Indication: PSORIASIS
     Route: 058
     Dates: start: 20090906, end: 20110908

REACTIONS (4)
  - QUADRIPLEGIA [None]
  - CERVICAL VERTEBRAL FRACTURE [None]
  - SPINAL CORD INJURY CERVICAL [None]
  - DISLOCATION OF VERTEBRA [None]
